FAERS Safety Report 21037142 (Version 1)
Quarter: 2022Q3

REPORT INFORMATION
  Report Type: Spontaneous
  Country: CH (occurrence: CH)
  Receive Date: 20220703
  Receipt Date: 20220703
  Transmission Date: 20221026
  Serious: Yes (Hospitalization, Other)
  Sender: FDA-Public Use
  Company Number: None

PATIENT
  Age: 77 Year
  Sex: Male

DRUGS (13)
  1. VANCOCIN [Suspect]
     Active Substance: VANCOMYCIN HYDROCHLORIDE
     Indication: Product used for unknown indication
     Dosage: FREQUENCY TIME : 1 DAY, DURATION : 10 DAYS
     Route: 048
     Dates: start: 20220228, end: 20220310
  2. DAPTOMYCIN [Suspect]
     Active Substance: DAPTOMYCIN
     Indication: Product used for unknown indication
     Dosage: UNIT DOSE: 700 MG, FREQUENCY TIME : 1DAY, DURATION : 22 DAYS
     Route: 042
     Dates: start: 20220310, end: 20220401
  3. FOLIC ACID streuli [Concomitant]
     Indication: Product used for unknown indication
     Dosage: ACIDUM FOLICUM STREULI, UNIT DOSE: 5 MG, FREQUENCY TIME : 1 DAY
     Route: 048
     Dates: end: 202202
  4. CALCIUM\CHOLECALCIFEROL [Concomitant]
     Active Substance: CALCIUM\CHOLECALCIFEROL
     Indication: Product used for unknown indication
     Dosage: UNIT DOSE: 1 DF, FREQUENCY TIME : 1 DAY
     Route: 048
  5. DUTASTERIDE\TAMSULOSIN [Concomitant]
     Active Substance: DUTASTERIDE\TAMSULOSIN
     Indication: Product used for unknown indication
     Dosage: FREQUENCY TIME : 1 DAY
     Route: 048
  6. MAGNESIUM ASPARTATE HYDROCHLORIDE [Concomitant]
     Active Substance: MAGNESIUM ASPARTATE HYDROCHLORIDE
     Indication: Product used for unknown indication
     Dosage: UNIT DOSE: 2.5 MILLIMOL, FREQUENCY TIME : 12 HRS
     Route: 048
  7. NEBIVOLOL [Concomitant]
     Active Substance: NEBIVOLOL
     Indication: Product used for unknown indication
     Dosage: UNIT DOSE: 2.5 MG, FREQUENCY TIME : 1 DAY
     Route: 048
  8. HYDROMORPHONE [Concomitant]
     Active Substance: HYDROMORPHONE
     Indication: Product used for unknown indication
     Dosage: UNIT DOSE: 16 MG, FREQUENCY TIME : 12 HRS
     Route: 048
  9. HYDROMORPHONE [Concomitant]
     Active Substance: HYDROMORPHONE
     Dosage: UNIT DOSE: 4 MG, FREQUENCY TIME : 1 DAY
     Route: 048
  10. PANTOPRAZOLE SODIUM [Concomitant]
     Active Substance: PANTOPRAZOLE SODIUM
     Indication: Product used for unknown indication
     Dosage: INCREASED DURING HOSPITALIZATION, PROBABLY FEBRUARY 2022 (POSSIBLY MARCH 2022), UNIT DOSE: 20 MG, FR
     Route: 048
     Dates: end: 202202
  11. PANTOPRAZOLE SODIUM [Concomitant]
     Active Substance: PANTOPRAZOLE SODIUM
     Dosage: INCREASED DURING HOSPITALIZATION, PROBABLY FEBRUARY 2022 (POSSIBLY MARCH 2022), UNIT DOSE: 40 MG, FR
     Route: 048
     Dates: start: 202202
  12. Valverde sleep [Concomitant]
     Indication: Product used for unknown indication
     Dosage: UNIT DOSE: 1 DF, FREQUENCY TIME : 1 DAY, VALVERDE SCHLAF
     Route: 048
  13. MIRABEGRON [Concomitant]
     Active Substance: MIRABEGRON
     Indication: Product used for unknown indication
     Dosage: UNIT DOSE: 50 MG, FREQUENCY TIME : 1 DAY
     Route: 048
     Dates: end: 20220307

REACTIONS (4)
  - Acute kidney injury [Recovering/Resolving]
  - Eosinophilic pneumonia [Recovering/Resolving]
  - Hepatic enzyme increased [Recovering/Resolving]
  - Nephritis [Recovering/Resolving]

NARRATIVE: CASE EVENT DATE: 20220305
